FAERS Safety Report 9516547 (Version 2)
Quarter: 2013Q4

REPORT INFORMATION
  Report Type: Spontaneous
  Country: US (occurrence: US)
  Receive Date: 20130911
  Receipt Date: 20131030
  Transmission Date: 20140711
  Serious: Yes (Other)
  Sender: FDA-Public Use
  Company Number: US-CELGENEUS-163-POMAL-13090644

PATIENT
  Age: 71 Year
  Sex: Female
  Weight: 72.8 kg

DRUGS (7)
  1. POMALYST [Suspect]
     Indication: PLASMA CELL MYELOMA
     Dosage: 4 MILLIGRAM
     Route: 048
     Dates: start: 20130819
  2. DECADRON [Concomitant]
     Indication: PLASMA CELL MYELOMA
     Route: 065
  3. DECADRON [Concomitant]
     Route: 065
     Dates: start: 201003, end: 201006
  4. DECADRON [Concomitant]
     Route: 065
     Dates: start: 201308
  5. COUMADIN [Concomitant]
     Indication: ANTICOAGULANT THERAPY
     Dosage: TAKE 1 OR 2
     Route: 048
  6. ACCUNEB [Concomitant]
     Indication: PRODUCT USED FOR UNKNOWN INDICATION
     Dosage: 12 MILLILITER
     Route: 065
  7. NEURONTIN [Concomitant]
     Indication: NEURALGIA
     Dosage: 1800 MILLIGRAM
     Route: 048

REACTIONS (1)
  - Transient ischaemic attack [Recovered/Resolved]
